FAERS Safety Report 7502459-X (Version None)
Quarter: 2011Q2

REPORT INFORMATION
  Report Type: 
  Country: None (occurrence: None)
  Receive Date: 20110525
  Receipt Date: 20110513
  Transmission Date: 20111010
  Serious: Yes (Other)
  Sender: FDA-Public Use
  Company Number: SE-JNJFOC-20110506636

PATIENT
  Age: 71 Year
  Sex: Female

DRUGS (8)
  1. CALCICHEW [Concomitant]
  2. ACLASTA [Concomitant]
     Dosage: ^LAST INFUSION WAS NOT RECENTLY^
  3. HIPREX [Concomitant]
  4. SIMPONI [Suspect]
     Indication: RHEUMATOID ARTHRITIS
     Route: 058
     Dates: start: 20110418
  5. PREDNISOLONE [Concomitant]
  6. SINCON [Concomitant]
  7. FEMANEST [Concomitant]
  8. NEXIUM [Concomitant]

REACTIONS (4)
  - PHARYNGEAL OEDEMA [None]
  - DYSPNOEA [None]
  - LYMPHADENOPATHY [None]
  - SWOLLEN TONGUE [None]
